FAERS Safety Report 6950448-6 (Version None)
Quarter: 2010Q3

REPORT INFORMATION
  Report Type: 
  Country: None (occurrence: None)
  Receive Date: 20100828
  Receipt Date: 20100210
  Transmission Date: 20110219
  Serious: No
  Sender: FDA-Public Use
  Company Number: US-ABBOTT-10P-163-0626382-00

PATIENT
  Sex: Female
  Weight: 75.818 kg

DRUGS (9)
  1. NIASPAN [Suspect]
     Indication: LOW DENSITY LIPOPROTEIN INCREASED
     Dates: start: 20100101, end: 20100208
  2. NIASPAN [Suspect]
     Dates: start: 20100208
  3. IMDUR [Concomitant]
     Indication: CHEST PAIN
  4. BYSTOLIC [Concomitant]
     Indication: HYPERTENSION
  5. SYNTHROID [Concomitant]
     Indication: HYPOTHYROIDISM
  6. RANEXA [Concomitant]
     Indication: CHEST PAIN
  7. PLAVIX [Concomitant]
     Indication: CORONARY ARTERIAL STENT INSERTION
  8. ZETIA [Concomitant]
     Indication: BLOOD CHOLESTEROL INCREASED
  9. MINITRAN [Concomitant]
     Indication: CHEST PAIN

REACTIONS (3)
  - FLUSHING [None]
  - FORMICATION [None]
  - PRURITUS GENERALISED [None]
